FAERS Safety Report 21180265 (Version 1)
Quarter: 2022Q3

REPORT INFORMATION
  Report Type: Report from Study
  Country: US (occurrence: US)
  Receive Date: 20220806
  Receipt Date: 20220806
  Transmission Date: 20221027
  Serious: Yes (Other)
  Sender: FDA-Public Use
  Company Number: US-ABBVIE-22K-163-4491821-00

PATIENT
  Sex: Male

DRUGS (3)
  1. VENCLEXTA [Suspect]
     Active Substance: VENETOCLAX
     Indication: Product used for unknown indication
     Route: 048
  2. LAMOTRIGINE [Suspect]
     Active Substance: LAMOTRIGINE
     Indication: Product used for unknown indication
     Route: 065
  3. DEXAMETHASONE [Suspect]
     Active Substance: DEXAMETHASONE
     Indication: Product used for unknown indication
     Route: 065

REACTIONS (15)
  - Polyp [Unknown]
  - Autonomic neuropathy [Unknown]
  - Neuropathy peripheral [Unknown]
  - Gastrointestinal pain [Unknown]
  - Erythema [Unknown]
  - Haemorrhoids [Unknown]
  - Peripheral artery aneurysm [Unknown]
  - Abnormal faeces [Unknown]
  - Chest injury [Unknown]
  - Muscle spasms [Unknown]
  - Erythema [Unknown]
  - Weight increased [Unknown]
  - Fluid retention [Unknown]
  - Faecal volume increased [Unknown]
  - Constipation [Unknown]
